FAERS Safety Report 19279580 (Version 1)
Quarter: 2021Q2

REPORT INFORMATION
  Report Type: Spontaneous
  Country: US (occurrence: US)
  Receive Date: 20210520
  Receipt Date: 20210520
  Transmission Date: 20210717
  Serious: Yes (Hospitalization, Other)
  Sender: FDA-Public Use
  Company Number: US-FRESENIUS KABI-FK202105088

PATIENT
  Age: 59 Year
  Sex: Female

DRUGS (6)
  1. NORADRENALINE (MANUFACTURER UNKNOWN) [Suspect]
     Active Substance: NOREPINEPHRINE
     Indication: HYPOTENSION
     Route: 065
  2. EPINEPHRINE. [Suspect]
     Active Substance: EPINEPHRINE
     Indication: RESPIRATORY ARREST
     Route: 065
  3. EPINEPHRINE. [Suspect]
     Active Substance: EPINEPHRINE
     Indication: HYPOTENSION
  4. DOPAMINE [Suspect]
     Active Substance: DOPAMINE HYDROCHLORIDE
     Indication: HYPOTENSION
     Route: 065
  5. FUROSEMIDE. [Concomitant]
     Active Substance: FUROSEMIDE
     Indication: PRODUCT USED FOR UNKNOWN INDICATION
     Route: 065
  6. ANTIBIOTICS [Concomitant]
     Active Substance: UNSPECIFIED INGREDIENT
     Indication: PNEUMONIA
     Route: 065

REACTIONS (4)
  - Pulmonary oedema [Unknown]
  - Systolic anterior motion of mitral valve [Unknown]
  - Hypertension [Unknown]
  - Left ventricle outflow tract obstruction [Unknown]
